FAERS Safety Report 6466448-9 (Version None)
Quarter: 2009Q4

REPORT INFORMATION
  Report Type: 
  Country: None (occurrence: None)
  Receive Date: 20091201
  Receipt Date: 20091201
  Transmission Date: 20100525
  Serious: Yes (Life-Threatening, Other)
  Sender: FDA-Public Use
  Company Number: None

PATIENT
  Age: 58 Year
  Sex: Female

DRUGS (1)
  1. THYROID TAB [Suspect]

REACTIONS (3)
  - ALOPECIA [None]
  - BLOOD PRESSURE SYSTOLIC INCREASED [None]
  - PRODUCT SUBSTITUTION ISSUE [None]
